FAERS Safety Report 23872706 (Version 1)
Quarter: 2024Q2

REPORT INFORMATION
  Report Type: Spontaneous
  Country: CN (occurrence: CN)
  Receive Date: 20240520
  Receipt Date: 20240520
  Transmission Date: 20240715
  Serious: Yes (Other)
  Sender: FDA-Public Use
  Company Number: CN-SA-SAC20240515000181

PATIENT
  Age: 84 Year
  Sex: Female

DRUGS (2)
  1. AGALSIDASE BETA [Suspect]
     Active Substance: AGALSIDASE BETA
     Indication: Rectal cancer
     Dosage: 400 MG
     Route: 041
     Dates: start: 20240409, end: 20240409
  2. TIPIRACIL HYDROCHLORIDE\TRIFLURIDINE [Concomitant]
     Active Substance: TIPIRACIL HYDROCHLORIDE\TRIFLURIDINE
     Indication: Rectal cancer
     Dosage: 40MG BID
     Route: 048
     Dates: start: 20240409, end: 20240409

REACTIONS (2)
  - Myelosuppression [Recovering/Resolving]
  - Product use in unapproved indication [Unknown]

NARRATIVE: CASE EVENT DATE: 20240409
